FAERS Safety Report 4734307-5 (Version None)
Quarter: 2005Q3

REPORT INFORMATION
  Report Type: 
  Country: None (occurrence: None)
  Receive Date: 20050721
  Receipt Date: 20050418
  Transmission Date: 20060218
  Serious: No
  Sender: FDA-Public Use
  Company Number: 2005SP000225

PATIENT
  Age: 64 Year
  Sex: Female
  Weight: 53.978 kg

DRUGS (7)
  1. LUNESTA [Suspect]
     Indication: FIBROMYALGIA
     Dosage: 3 MG;HS; ORAL
     Route: 048
     Dates: start: 20050412
  2. LUNESTA [Suspect]
     Indication: INSOMNIA
     Dosage: 3 MG;HS; ORAL
     Route: 048
     Dates: start: 20050412
  3. VITAMINS [Concomitant]
  4. PREMPRO [Concomitant]
  5. SYNTHROID [Concomitant]
  6. DICLOFENAC [Concomitant]
  7. AMBIEN [Concomitant]

REACTIONS (3)
  - ABNORMAL DREAMS [None]
  - MIDDLE INSOMNIA [None]
  - TRANCE [None]
